FAERS Safety Report 6517257 (Version 3)
Quarter: 2016Q1

REPORT INFORMATION
  Report Type: Spontaneous
  Country: FR (occurrence: FR)
  Receive Date: 20071231
  Receipt Date: 20160129
  Transmission Date: 20160526
  Serious: Yes (Other)
  Sender: FDA-Public Use
  Company Number: FR-BRISTOL-MYERS SQUIBB COMPANY-14027486

PATIENT
  Sex: Female

DRUGS (2)
  1. AVONEX [Suspect]
     Active Substance: INTERFERON BETA-1A
     Indication: MULTIPLE SCLEROSIS
     Dosage: 1 DF, QWK
     Route: 030
     Dates: end: 20060517
  2. GLUCOPHAGE [Suspect]
     Active Substance: METFORMIN HYDROCHLORIDE
     Indication: TYPE 2 DIABETES MELLITUS
     Dosage: UNK
     Route: 048
     Dates: end: 20060518

REACTIONS (4)
  - Pregnancy [Recovered/Resolved]
  - Premature delivery [Unknown]
  - Amniotic fluid volume decreased [Unknown]
  - Caesarean section [Unknown]

NARRATIVE: CASE EVENT DATE: 20060628
